FAERS Safety Report 6244821-1 (Version None)
Quarter: 2009Q2

REPORT INFORMATION
  Report Type: 
  Country: None (occurrence: None)
  Receive Date: 20090625
  Receipt Date: 20090619
  Transmission Date: 20091009
  Serious: Yes (Hospitalization)
  Sender: FDA-Public Use
  Company Number: JP-ELI_LILLY_AND_COMPANY-JP200902006091

PATIENT
  Sex: Male
  Weight: 92 kg

DRUGS (5)
  1. SOMATROPIN [Suspect]
     Indication: GROWTH HORMONE DEFICIENCY
     Dosage: 0.27 MG, DAILY (1/D)
     Route: 058
     Dates: start: 20060822, end: 20061212
  2. SOMATROPIN [Suspect]
     Dosage: 0.27 MG, DAILY (1/D)
     Route: 058
     Dates: start: 20071218, end: 20090203
  3. URSO 250 [Concomitant]
     Indication: HEPATIC FUNCTION ABNORMAL
     Dosage: 150 MG, DAILY (1/D)
     Route: 048
     Dates: start: 20060501
  4. ZETIA [Concomitant]
     Indication: HYPERLIPIDAEMIA
     Dosage: 10 MG, DAILY (1/D)
     Route: 048
     Dates: start: 20071106
  5. DESMOPRESSIN /00361902/ [Concomitant]
     Indication: DIABETES INSIPIDUS
     Dosage: 7.5 UG, DAILY (1/D)
     Route: 045
     Dates: start: 20060501

REACTIONS (1)
  - CRANIOPHARYNGIOMA [None]
